FAERS Safety Report 6930111-8 (Version None)
Quarter: 2010Q3

REPORT INFORMATION
  Report Type: 
  Country: None (occurrence: None)
  Receive Date: 20100818
  Receipt Date: 20100202
  Transmission Date: 20110219
  Serious: No
  Sender: FDA-Public Use
  Company Number: US-ASTRAZENECA-2003UW13200

PATIENT
  Age: 82 Year
  Sex: Female
  Weight: 72.6 kg

DRUGS (7)
  1. IRESSA [Suspect]
     Indication: NON-SMALL CELL LUNG CANCER
     Route: 048
     Dates: start: 20040101, end: 20100130
  2. OMEPRAZOLE [Concomitant]
  3. SYNTHROID [Concomitant]
  4. SPIRIVA [Concomitant]
  5. CLARINEX [Concomitant]
  6. VITAMINS [Concomitant]
  7. ASPIRIN [Concomitant]

REACTIONS (6)
  - DRUG INEFFECTIVE [None]
  - DRY SKIN [None]
  - DYSPNOEA [None]
  - FUNGAL INFECTION [None]
  - PULMONARY OEDEMA [None]
  - RASH PRURITIC [None]
